FAERS Safety Report 7370144-3 (Version None)
Quarter: 2011Q1

REPORT INFORMATION
  Report Type: 
  Country: None (occurrence: None)
  Receive Date: 20110323
  Receipt Date: 20100609
  Transmission Date: 20110831
  Serious: No
  Sender: FDA-Public Use
  Company Number: US-ASTRAZENECA-2010SE26971

PATIENT
  Sex: Male

DRUGS (2)
  1. ZESTRIL [Suspect]
     Route: 048
     Dates: start: 20080101
  2. TOPROL-XL [Suspect]
     Route: 048
     Dates: start: 20080101

REACTIONS (1)
  - DARK CIRCLES UNDER EYES [None]
